FAERS Safety Report 26063619 (Version 1)
Quarter: 2025Q4

REPORT INFORMATION
  Report Type: Spontaneous
  Country: EU (occurrence: EU)
  Receive Date: 20251119
  Receipt Date: 20251119
  Transmission Date: 20260117
  Serious: Yes (Death, Other)
  Sender: CIPLA
  Company Number: EU-AFSSAPS-PB2025001426

PATIENT

DRUGS (1)
  1. RIVAROXABAN [Suspect]
     Active Substance: RIVAROXABAN
     Indication: Atrial fibrillation
     Dosage: 20 MILLIGRAM, QD
     Route: 048
     Dates: start: 202509, end: 202510

REACTIONS (3)
  - Cardiogenic shock [Fatal]
  - Shock haemorrhagic [Fatal]
  - Anticoagulation drug level increased [Unknown]

NARRATIVE: CASE EVENT DATE: 20251022
